FAERS Safety Report 5527516-9 (Version None)
Quarter: 2007Q4

REPORT INFORMATION
  Report Type: 
  Country: None (occurrence: None)
  Receive Date: 20071121
  Receipt Date: 20071109
  Transmission Date: 20080405
  Serious: Yes (Other)
  Sender: FDA-Public Use
  Company Number: B0496058A

PATIENT

DRUGS (2)
  1. IMITREX [Suspect]
     Dosage: ORAL
     Route: 048
  2. SSRI           (FORMULATION UNKNOWN) (SSRI) [Suspect]

REACTIONS (2)
  - DRUG INTERACTION [None]
  - SEROTONIN SYNDROME [None]
